FAERS Safety Report 7646121-1 (Version None)
Quarter: 2011Q3

REPORT INFORMATION
  Report Type: 
  Country: None (occurrence: None)
  Receive Date: 20110801
  Receipt Date: 20110720
  Transmission Date: 20111222
  Serious: No
  Sender: FDA-Public Use
  Company Number: US-BIOGENIDEC-2011BI014536

PATIENT
  Sex: Female

DRUGS (1)
  1. TYSABRI [Suspect]
     Indication: MULTIPLE SCLEROSIS
     Route: 042
     Dates: start: 20090826

REACTIONS (6)
  - BACK PAIN [None]
  - SPINAL FRACTURE [None]
  - GENERAL SYMPTOM [None]
  - FALL [None]
  - MONOPLEGIA [None]
  - COGNITIVE DISORDER [None]
